FAERS Safety Report 22059882 (Version 1)
Quarter: 2023Q1

REPORT INFORMATION
  Report Type: Report from Study
  Country: BR (occurrence: BR)
  Receive Date: 20230303
  Receipt Date: 20230303
  Transmission Date: 20230418
  Serious: Yes (Death)
  Sender: FDA-Public Use
  Company Number: BR-JNJFOC-20230305056

PATIENT
  Age: 64 Year
  Sex: Male
  Weight: 73 kg

DRUGS (1)
  1. INFLIXIMAB [Suspect]
     Active Substance: INFLIXIMAB
     Indication: Rheumatoid arthritis
     Route: 041

REACTIONS (1)
  - Neoplasm malignant [Fatal]
